FAERS Safety Report 5335863-9 (Version None)
Quarter: 2007Q2

REPORT INFORMATION
  Report Type: 
  Country: None (occurrence: None)
  Receive Date: 20070301
  Receipt Date: 20061128
  Transmission Date: 20071010
  Serious: No
  Sender: FDA-Public Use
  Company Number: 232870

PATIENT
  Age: 13 Year
  Sex: Female

DRUGS (2)
  1. NUTROPIN [Suspect]
     Indication: HYPOPITUITARISM
     Dosage: 1.5 MG, QD, SUBCUTANEOUS
     Route: 058
     Dates: start: 20050201, end: 20061011
  2. XOLAIR [Concomitant]

REACTIONS (1)
  - SCOLIOSIS [None]
